FAERS Safety Report 4497125-1 (Version None)
Quarter: 2004Q3

REPORT INFORMATION
  Report Type: 
  Country: None (occurrence: None)
  Receive Date: 20040927
  Receipt Date: 20040526
  Transmission Date: 20050211
  Serious: No
  Sender: FDA-Public Use
  Company Number: USA040568606

PATIENT
  Age: 11 Year
  Sex: Male
  Weight: 43 kg

DRUGS (2)
  1. STRATTERA [Suspect]
     Indication: ATTENTION DEFICIT/HYPERACTIVITY DISORDER
     Dosage: 50 MG IN THE MORNING
     Dates: start: 20031001
  2. CONCERTA [Concomitant]

REACTIONS (3)
  - ANOREXIA [None]
  - CHEST PAIN [None]
  - SOMNOLENCE [None]
